FAERS Safety Report 7418005-5 (Version None)
Quarter: 2011Q2

REPORT INFORMATION
  Report Type: 
  Country: None (occurrence: None)
  Receive Date: 20110415
  Receipt Date: 20100317
  Transmission Date: 20111010
  Serious: No
  Sender: FDA-Public Use
  Company Number: US-ASTRAZENECA-2010SE11685

PATIENT
  Age: 75 Year
  Sex: Male
  Weight: 87.5 kg

DRUGS (3)
  1. ASPIRIN [Concomitant]
  2. AVACOR [Concomitant]
     Indication: BLOOD CHOLESTEROL
  3. ZESTORETIC [Suspect]
     Indication: HYPERTENSION
     Dosage: 20/25 MG
     Route: 048
     Dates: start: 20080101

REACTIONS (2)
  - DRUG INEFFECTIVE [None]
  - BLOOD PRESSURE INCREASED [None]
